FAERS Safety Report 5303630-8 (Version None)
Quarter: 2007Q2

REPORT INFORMATION
  Report Type: 
  Country: None (occurrence: None)
  Receive Date: 20070420
  Receipt Date: 20070410
  Transmission Date: 20071010
  Serious: Yes (Other)
  Sender: FDA-Public Use
  Company Number: BY-PFIZER INC-2007019405

PATIENT
  Sex: Male
  Weight: 2.3 kg

DRUGS (1)
  1. ZYVOX [Suspect]
     Indication: SEPSIS
     Route: 042
     Dates: start: 20070227, end: 20070304

REACTIONS (7)
  - ACIDOSIS [None]
  - ALANINE AMINOTRANSFERASE INCREASED [None]
  - ASPARTATE AMINOTRANSFERASE INCREASED [None]
  - CYANOSIS [None]
  - HYPOTENSION [None]
  - LEUKOPENIA [None]
  - TACHYCARDIA [None]
